FAERS Safety Report 20410356 (Version 1)
Quarter: 2022Q1

REPORT INFORMATION
  Report Type: Spontaneous
  Country: US (occurrence: US)
  Receive Date: 20220201
  Receipt Date: 20220201
  Transmission Date: 20220424
  Serious: Yes (Hospitalization, Other)
  Sender: FDA-Public Use
  Company Number: US-PURDUE-USA-2021-0291034

PATIENT

DRUGS (4)
  1. OXYCONTIN [Suspect]
     Active Substance: OXYCODONE HYDROCHLORIDE
     Indication: Product used for unknown indication
     Dosage: 20 MG, Q4H
     Route: 048
  2. HYDROMORPHONE [Suspect]
     Active Substance: HYDROMORPHONE
     Indication: Product used for unknown indication
     Dosage: UNKNOWN
     Route: 048
  3. EXALGO [Suspect]
     Active Substance: HYDROMORPHONE HYDROCHLORIDE
     Indication: Product used for unknown indication
     Dosage: UNK, BID
     Route: 065
  4. EXALGO [Suspect]
     Active Substance: HYDROMORPHONE HYDROCHLORIDE
     Dosage: 32 MG, NOCTE
     Route: 065

REACTIONS (14)
  - Suicide attempt [Unknown]
  - Brain oedema [Unknown]
  - Hospitalisation [Unknown]
  - Pain [Unknown]
  - Illness [Unknown]
  - Asthenia [Unknown]
  - Fatigue [Unknown]
  - Depression [Unknown]
  - Haematoma [Unknown]
  - Emotional distress [Unknown]
  - Anxiety [Unknown]
  - Liver disorder [Unknown]
  - Renal disorder [Unknown]
  - Memory impairment [Unknown]
